FAERS Safety Report 4527803-7 (Version None)
Quarter: 2004Q4

REPORT INFORMATION
  Report Type: 
  Country: None (occurrence: None)
  Receive Date: 20041123
  Receipt Date: 20040318
  Transmission Date: 20050328
  Serious: Yes (Hospitalization)
  Sender: FDA-Public Use
  Company Number: ATO-04-0252(0)

PATIENT
  Age: 50 Year
  Weight: 65.7716 kg

DRUGS (9)
  1. TRISENOX [Suspect]
     Indication: ACUTE PROMYELOCYTIC LEUKAEMIA
     Dosage: 20 DOSES TO DATE (0.15 MG/KG,DAILY),IVI
     Dates: start: 20040216
  2. TRICOR [Concomitant]
  3. SYNTHROID [Concomitant]
  4. TYLENOL (CAPLET) [Concomitant]
  5. TYLENOL W/ CODEINE [Concomitant]
  6. BENADRYL [Concomitant]
  7. MARINOL [Concomitant]
  8. ANZEMET [Concomitant]
  9. MORPHINE [Concomitant]

REACTIONS (7)
  - DYSPNOEA [None]
  - NAUSEA [None]
  - NEUROPATHY PERIPHERAL [None]
  - PHARYNGOLARYNGEAL PAIN [None]
  - TREMOR [None]
  - URTICARIA [None]
  - WEIGHT INCREASED [None]
